FAERS Safety Report 6933588-7 (Version None)
Quarter: 2010Q3

REPORT INFORMATION
  Report Type: 
  Country: None (occurrence: None)
  Receive Date: 20100817
  Receipt Date: 20100805
  Transmission Date: 20110219
  Serious: Yes (Death)
  Sender: FDA-Public Use
  Company Number: 2010S1000695

PATIENT
  Sex: Female
  Weight: 52 kg

DRUGS (3)
  1. LIVALO [Suspect]
     Indication: HYPERCHOLESTEROLAEMIA
     Dosage: 1 MG;1X;PO, 1 MG;1X;PO
     Route: 048
     Dates: start: 20090110, end: 20090101
  2. LIVALO [Suspect]
     Indication: HYPERCHOLESTEROLAEMIA
     Dosage: 1 MG;1X;PO, 1 MG;1X;PO
     Route: 048
     Dates: start: 20040409, end: 20090109
  3. BLOPRESS [Concomitant]

REACTIONS (1)
  - GALLBLADDER CANCER [None]
